FAERS Safety Report 4439727-4 (Version None)
Quarter: 2004Q3

REPORT INFORMATION
  Report Type: 
  Country: None (occurrence: None)
  Receive Date: 20040901
  Receipt Date: 20040901
  Transmission Date: 20050211
  Serious: Yes (Life-Threatening)
  Sender: FDA-Public Use
  Company Number: None

PATIENT
  Sex: Female
  Weight: 66.6788 kg

DRUGS (7)
  1. REMERON [Suspect]
     Indication: DEPRESSION
     Dosage: 1 TAB DAILY ORAL
     Route: 048
     Dates: start: 20040510, end: 20040610
  2. TRAMADOL HCL [Concomitant]
  3. TRAZODONE HCL [Concomitant]
  4. LEVOXYL [Concomitant]
  5. CLONAZEPAM [Concomitant]
  6. MYSOLINE [Concomitant]
  7. ZOLOFT [Concomitant]

REACTIONS (7)
  - CONDITION AGGRAVATED [None]
  - DEPRESSION [None]
  - DRUG INEFFECTIVE [None]
  - FEAR [None]
  - NIGHTMARE [None]
  - SUICIDAL IDEATION [None]
  - THINKING ABNORMAL [None]
